FAERS Safety Report 10100424 (Version 1)
Quarter: 2014Q2

REPORT INFORMATION
  Report Type: Spontaneous
  Country: HU (occurrence: HU)
  Receive Date: 20140423
  Receipt Date: 20140423
  Transmission Date: 20141212
  Serious: Yes (Other)
  Sender: FDA-Public Use
  Company Number: HU-WATSON-2014-07915

PATIENT
  Sex: Male

DRUGS (2)
  1. HALOPERIDOL (UNKNOWN) [Suspect]
     Indication: REACTIVE PSYCHOSIS
     Dosage: UNKNOWN - DEPOT INJECTION
     Route: 030
  2. ZUCLOPENTHIXOL [Suspect]
     Indication: REACTIVE PSYCHOSIS
     Dosage: 400 MG 4 TIMES A WEEK - DEPOT INJECTION
     Route: 030

REACTIONS (1)
  - Extrapyramidal disorder [Unknown]
